FAERS Safety Report 9267664 (Version 1)
Quarter: 2013Q2

REPORT INFORMATION
  Report Type: Report from Study
  Country: US (occurrence: US)
  Receive Date: 20130502
  Receipt Date: 20130502
  Transmission Date: 20140414
  Serious: No
  Sender: FDA-Public Use
  Company Number: US-ALEXION-A201200819

PATIENT
  Age: 26 Year
  Sex: Female

DRUGS (1)
  1. SOLIRIS [Suspect]
     Indication: HAEMOLYTIC URAEMIC SYNDROME
     Route: 042

REACTIONS (5)
  - Blood creatinine increased [Recovering/Resolving]
  - Blood lactate dehydrogenase increased [Unknown]
  - Nausea [Unknown]
  - Lethargy [Unknown]
  - Fatigue [Unknown]
